FAERS Safety Report 7926942-8 (Version None)
Quarter: 2011Q4

REPORT INFORMATION
  Report Type: 
  Country: None (occurrence: None)
  Receive Date: 20111118
  Receipt Date: 20111115
  Transmission Date: 20120403
  Serious: No
  Sender: FDA-Public Use
  Company Number: US-PFIZER INC-2011235594

PATIENT
  Sex: Male

DRUGS (1)
  1. LIPITOR [Suspect]
     Indication: HYPERLIPIDAEMIA
     Dosage: UNK
     Route: 048
     Dates: start: 20080601, end: 20090101

REACTIONS (3)
  - MYOPATHY [None]
  - MUSCLE FATIGUE [None]
  - MUSCULAR WEAKNESS [None]
